FAERS Safety Report 25753600 (Version 1)
Quarter: 2025Q3

REPORT INFORMATION
  Report Type: Spontaneous
  Country: US (occurrence: US)
  Receive Date: 20250903
  Receipt Date: 20250903
  Transmission Date: 20251020
  Serious: No
  Sender: PFIZER
  Company Number: US-PFIZER INC-202500173565

PATIENT
  Age: 55 Year
  Sex: Female

DRUGS (1)
  1. NURTEC ODT [Suspect]
     Active Substance: RIMEGEPANT SULFATE
     Indication: Migraine
     Dates: start: 20250819, end: 20250829

REACTIONS (2)
  - Palpitations [Unknown]
  - Paraesthesia [Unknown]

NARRATIVE: CASE EVENT DATE: 20250825
